FAERS Safety Report 23769197 (Version 1)
Quarter: 2024Q2

REPORT INFORMATION
  Report Type: Spontaneous
  Country: NL (occurrence: NL)
  Receive Date: 20240422
  Receipt Date: 20240422
  Transmission Date: 20240716
  Serious: Yes (Other)
  Sender: FDA-Public Use
  Company Number: None

PATIENT
  Age: 48 Year
  Sex: Female
  Weight: 90 kg

DRUGS (4)
  1. DUPILUMAB [Suspect]
     Active Substance: DUPILUMAB
     Indication: Asthma
     Dosage: 2 DF, QOW
     Dates: start: 20231205, end: 20240207
  2. BECLOMETHASONE\FORMOTEROL [Concomitant]
     Active Substance: BECLOMETHASONE\FORMOTEROL
     Dosage: BECLOMETASONE/FORMOTEROL AEROSOL 100/6UG/DO/FOSTER AEROSOL 100/6MCG/DOSE AEROSOL 180DO
  3. BUDESONIDE [Concomitant]
     Active Substance: BUDESONIDE
     Dosage: NASAL SPRAY 32UG/DO/RHINOCORT MIST NASAL SPRAY 32MCG/DO 120DO
  4. HYDROXOCOBALAMIN [Concomitant]
     Active Substance: HYDROXOCOBALAMIN
     Dosage: SOLUTION FOR INJECTION 500MCG/ML AMP 2ML

REACTIONS (5)
  - Pneumonia [Recovering/Resolving]
  - Petechiae [Recovering/Resolving]
  - Sensory disturbance [Recovering/Resolving]
  - Neuralgia [Recovering/Resolving]
  - Arthralgia [Recovering/Resolving]
